FAERS Safety Report 12568231 (Version 4)
Quarter: 2016Q3

REPORT INFORMATION
  Report Type: Spontaneous
  Country: CH (occurrence: CH)
  Receive Date: 20160718
  Receipt Date: 20160921
  Transmission Date: 20161109
  Serious: Yes (Life-Threatening, Hospitalization, Disabling, Other)
  Sender: FDA-Public Use
  Company Number: CH-GILEAD-2016-0223146

PATIENT
  Sex: Male

DRUGS (2)
  1. RITUXIMAB [Concomitant]
     Active Substance: RITUXIMAB
     Indication: CHRONIC LYMPHOCYTIC LEUKAEMIA
  2. ZYDELIG [Suspect]
     Active Substance: IDELALISIB
     Indication: CHRONIC LYMPHOCYTIC LEUKAEMIA
     Dosage: 150 MG, BID
     Route: 048
     Dates: start: 201511, end: 201606

REACTIONS (5)
  - Toxic shock syndrome streptococcal [Unknown]
  - Pulmonary alveolar haemorrhage [Unknown]
  - Autoimmune disorder [Unknown]
  - Necrotising fasciitis [Unknown]
  - Pneumonia [Unknown]
